FAERS Safety Report 19087322 (Version 3)
Quarter: 2021Q2

REPORT INFORMATION
  Report Type: Report from Study
  Country: US (occurrence: US)
  Receive Date: 20210402
  Receipt Date: 20210601
  Transmission Date: 20210717
  Serious: Yes (Hospitalization, Other)
  Sender: FDA-Public Use
  Company Number: US-B.I. PHARMACEUTICALS,INC./RIDGEFIELD-2020-BI-061258

PATIENT
  Age: 72 Year
  Sex: Male

DRUGS (1)
  1. OFEV [Suspect]
     Active Substance: NINTEDANIB
     Indication: IDIOPATHIC PULMONARY FIBROSIS
     Route: 048
     Dates: start: 20190709

REACTIONS (7)
  - Knee operation [Unknown]
  - Post procedural haematoma [Not Recovered/Not Resolved]
  - Illness [Recovering/Resolving]
  - Impaired healing [Not Recovered/Not Resolved]
  - Arthralgia [Unknown]
  - Knee arthroplasty [Unknown]
  - Allergy to metals [Unknown]

NARRATIVE: CASE EVENT DATE: 201907
